FAERS Safety Report 25408392 (Version 1)
Quarter: 2025Q2

REPORT INFORMATION
  Report Type: Spontaneous
  Country: US (occurrence: US)
  Receive Date: 20250606
  Receipt Date: 20250606
  Transmission Date: 20250716
  Serious: No
  Sender: ABBVIE
  Company Number: US-ABBVIE-6309302

PATIENT
  Age: 62 Year
  Sex: Female
  Weight: 53 kg

DRUGS (3)
  1. ACTONEL [Suspect]
     Active Substance: RISEDRONATE SODIUM
     Indication: Osteoporosis
     Route: 048
     Dates: start: 20250519
  2. INDERAL [Concomitant]
     Active Substance: PROPRANOLOL HYDROCHLORIDE
     Indication: Migraine
  3. VEOZAH [Concomitant]
     Active Substance: FEZOLINETANT
     Indication: Hot flush

REACTIONS (13)
  - Arthralgia [Not Recovered/Not Resolved]
  - Epstein-Barr virus antigen positive [Not Recovered/Not Resolved]
  - Hypersomnia [Not Recovered/Not Resolved]
  - Asthenia [Not Recovered/Not Resolved]
  - Illness [Not Recovered/Not Resolved]
  - Muscle fatigue [Not Recovered/Not Resolved]
  - Burning sensation [Not Recovered/Not Resolved]
  - Antinuclear antibody positive [Not Recovered/Not Resolved]
  - Autoimmune disorder [Unknown]
  - Lymphocyte count abnormal [Not Recovered/Not Resolved]
  - White blood cell count abnormal [Not Recovered/Not Resolved]
  - Influenza [Not Recovered/Not Resolved]
  - Gait inability [Unknown]

NARRATIVE: CASE EVENT DATE: 20250501
